FAERS Safety Report 8321840-2 (Version None)
Quarter: 2012Q2

REPORT INFORMATION
  Report Type: 
  Country: None (occurrence: None)
  Receive Date: 20120430
  Receipt Date: 20110602
  Transmission Date: 20120825
  Serious: Yes (Death)
  Sender: FDA-Public Use
  Company Number: US-GLAXOSMITHKLINE-A0975185A

PATIENT
  Age: 10 Day
  Sex: Female
  Weight: 3.2 kg

DRUGS (13)
  1. VALTREX [Suspect]
     Indication: HERPES VIRUS INFECTION
     Route: 064
     Dates: start: 20030101
  2. CELEBREX [Concomitant]
     Route: 064
  3. FLONASE [Concomitant]
     Route: 064
  4. RELPAX [Concomitant]
     Indication: MIGRAINE
     Dosage: 40MG AS REQUIRED
     Route: 064
     Dates: start: 20100209, end: 20110601
  5. TOPAMAX [Concomitant]
     Indication: HEADACHE
     Route: 064
     Dates: end: 20110601
  6. TRAMADOL HCL [Concomitant]
     Indication: PAIN
     Dosage: 50MG AS REQUIRED
     Route: 064
     Dates: start: 20110205, end: 20110601
  7. CHANTIX [Concomitant]
     Route: 064
  8. VITAMIN TAB [Concomitant]
     Route: 064
  9. VICODIN [Concomitant]
     Indication: PAIN IN EXTREMITY
     Route: 064
     Dates: start: 20110507, end: 20110607
  10. FLEXERIL [Concomitant]
     Indication: MUSCLE SPASMS
     Dosage: 10MG THREE TIMES PER DAY
     Route: 064
     Dates: start: 20110322, end: 20110601
  11. LORATADINE [Concomitant]
     Indication: RHINITIS ALLERGIC
     Dosage: 10MG AS REQUIRED
     Route: 064
     Dates: end: 20100601
  12. LYRICA [Concomitant]
     Indication: FIBROMYALGIA
     Dosage: 100MG TWICE PER DAY
     Route: 064
     Dates: start: 20100209, end: 20110607
  13. NEXIUM [Concomitant]
     Indication: GASTROOESOPHAGEAL REFLUX DISEASE
     Route: 064
     Dates: start: 20110107, end: 20110601

REACTIONS (2)
  - DEATH [None]
  - FOETAL EXPOSURE DURING PREGNANCY [None]
